FAERS Safety Report 8474612-2 (Version None)
Quarter: 2012Q2

REPORT INFORMATION
  Report Type: 
  Country: None (occurrence: None)
  Receive Date: 20120628
  Receipt Date: 20120625
  Transmission Date: 20120825
  Serious: No
  Sender: FDA-Public Use
  Company Number: US-PFIZER INC-2012153178

PATIENT
  Sex: Female

DRUGS (4)
  1. LYRICA [Suspect]
     Dosage: UNK
     Route: 048
     Dates: end: 20120601
  2. LYRICA [Suspect]
     Indication: NEURALGIA
     Dosage: 50 MG, 3X/DAY
     Route: 048
     Dates: start: 20080101
  3. LYRICA [Suspect]
     Dosage: REDUCED DOSE
     Route: 048
     Dates: start: 20120401
  4. WELCHOL [Suspect]
     Indication: DIARRHOEA
     Dosage: UNK

REACTIONS (3)
  - NAUSEA [None]
  - NERVOUSNESS [None]
  - GASTROINTESTINAL PAIN [None]
